FAERS Safety Report 5615592-4 (Version None)
Quarter: 2008Q1

REPORT INFORMATION
  Report Type: 
  Country: None (occurrence: None)
  Receive Date: 20080205
  Receipt Date: 20080205
  Transmission Date: 20080703
  Serious: Yes (Other)
  Sender: FDA-Public Use
  Company Number: None

PATIENT
  Age: 51 Year
  Sex: Female
  Weight: 66.2252 kg

DRUGS (12)
  1. ALENDRONATE SODIUM [Suspect]
     Indication: OSTEOPENIA
     Dosage: ONE TABLET ONCE A WEEK PO
     Route: 048
     Dates: start: 20080101, end: 20080124
  2. FOSAMAX [Concomitant]
  3. BIAXIN [Concomitant]
  4. FLUCINAZOLE [Concomitant]
  5. BACTRIM [Concomitant]
  6. OMEPRAZOLE [Concomitant]
  7. OXYCODONE HCL [Concomitant]
  8. BACLOFEN [Concomitant]
  9. TESTOSTERONE [Concomitant]
  10. CORTEF [Concomitant]
  11. DHEA [Concomitant]
  12. THYROID TAB [Concomitant]

REACTIONS (12)
  - ARTHRALGIA [None]
  - BACK PAIN [None]
  - GASTROOESOPHAGEAL REFLUX DISEASE [None]
  - INSOMNIA [None]
  - MUSCULOSKELETAL STIFFNESS [None]
  - NAUSEA [None]
  - OEDEMA PERIPHERAL [None]
  - PAIN IN EXTREMITY [None]
  - PAIN IN JAW [None]
  - SWELLING [None]
  - TEMPERATURE INTOLERANCE [None]
  - TOOTHACHE [None]
